FAERS Safety Report 20593432 (Version 4)
Quarter: 2024Q3

REPORT INFORMATION
  Report Type: Report from Study
  Country: US (occurrence: US)
  Receive Date: 20220315
  Receipt Date: 20240806
  Transmission Date: 20241017
  Serious: Yes (Hospitalization)
  Sender: PAREXEL
  Company Number: US-AVEO ONCOLOGY-2022-AVEO-US000028

PATIENT

DRUGS (2)
  1. FOTIVDA [Suspect]
     Active Substance: TIVOZANIB HYDROCHLORIDE
     Indication: Renal cell carcinoma
     Dosage: 0.89 MG, DAILY FOR 7 DAYS THEN 7 DAYS OFF
     Route: 048
     Dates: start: 20220117, end: 20220308
  2. CYMBALTA [Concomitant]
     Active Substance: DULOXETINE HYDROCHLORIDE
     Dosage: 60 MG, DAILY

REACTIONS (13)
  - Confusional state [Unknown]
  - Failure to thrive [Unknown]
  - Metastases to bone [Unknown]
  - Renal cell carcinoma [Unknown]
  - Hyponatraemia [Unknown]
  - Nausea [Unknown]
  - Decreased appetite [Unknown]
  - Bedridden [Unknown]
  - Anal incontinence [Unknown]
  - Constipation [Unknown]
  - Depressed mood [Unknown]
  - Malaise [Unknown]
  - Off label use [Unknown]
